FAERS Safety Report 11639060 (Version 5)
Quarter: 2016Q3

REPORT INFORMATION
  Report Type: Report from Study
  Country: US (occurrence: US)
  Receive Date: 20151018
  Receipt Date: 20160901
  Transmission Date: 20161109
  Serious: No
  Sender: FDA-Public Use
  Company Number: US-009507513-1510USA006208

PATIENT
  Age: 1 Day
  Sex: Male
  Weight: 2.27 kg

DRUGS (3)
  1. SOVALDI [Suspect]
     Active Substance: SOFOSBUVIR
     Dosage: UNK
     Route: 064
     Dates: start: 20141115
  2. REBETOL [Suspect]
     Active Substance: RIBAVIRIN
     Dosage: UNK
     Route: 064
     Dates: start: 20141115
  3. IRON (UNSPECIFIED) (+) MINERALS (UNSPECIFIED) (+) VITAMINS (UNSPECIFIE [Concomitant]
     Active Substance: IRON\MINERALS\VITAMINS
     Dosage: UNK, QD
     Dates: start: 20141210

REACTIONS (3)
  - Premature baby [Recovered/Resolved]
  - Exposure via father [Recovered/Resolved]
  - Foetal exposure during pregnancy [Recovered/Resolved]
